FAERS Safety Report 9143852 (Version 1)
Quarter: 2013Q1

REPORT INFORMATION
  Report Type: Report from Study
  Country: DE (occurrence: DE)
  Receive Date: 20130306
  Receipt Date: 20130306
  Transmission Date: 20140127
  Serious: Yes (Hospitalization, Other)
  Sender: FDA-Public Use
  Company Number: DE-ROCHE-1197181

PATIENT
  Sex: Female
  Weight: 80 kg

DRUGS (6)
  1. PREDNISOLONE [Suspect]
     Indication: PRODUCT USED FOR UNKNOWN INDICATION
     Route: 065
  2. TOCILIZUMAB [Suspect]
     Indication: RHEUMATOID ARTHRITIS
     Route: 065
     Dates: start: 20101012
  3. ARAVA [Concomitant]
     Route: 065
  4. MONOFLAM [Concomitant]
  5. OMEPRAZOL [Concomitant]
     Route: 065
  6. ROCALTROL [Concomitant]
     Route: 065

REACTIONS (2)
  - Pneumonia [Recovered/Resolved]
  - Pulmonary embolism [Unknown]
